FAERS Safety Report 14276989 (Version 1)
Quarter: 2017Q4

REPORT INFORMATION
  Report Type: Spontaneous
  Country: US (occurrence: US)
  Receive Date: 20171212
  Receipt Date: 20171212
  Transmission Date: 20180321
  Serious: Yes (Death)
  Sender: FDA-Public Use
  Company Number: US-PERRIGO-17US031075

PATIENT
  Age: 39 Year
  Sex: Female

DRUGS (6)
  1. DIAZEPAM. [Suspect]
     Active Substance: DIAZEPAM
     Indication: INTENTIONAL PRODUCT MISUSE
     Dosage: UNK
     Route: 065
  2. ACETAMINOPHEN W/HYDROCODONE [Suspect]
     Active Substance: ACETAMINOPHEN\HYDROCODONE
     Indication: INTENTIONAL PRODUCT MISUSE
     Dosage: UNK
     Route: 065
  3. HEROIN [Suspect]
     Active Substance: DIAMORPHINE
     Indication: INTENTIONAL PRODUCT MISUSE
     Dosage: UNK
     Route: 065
  4. COCAINE [Suspect]
     Active Substance: COCAINE
     Indication: INTENTIONAL PRODUCT MISUSE
     Dosage: UNK
     Route: 065
  5. POTASSIUM CHLORIDE. [Suspect]
     Active Substance: POTASSIUM CHLORIDE
     Indication: INTENTIONAL PRODUCT MISUSE
     Dosage: UNK
     Route: 065
  6. METHAMPHETAMINE [Suspect]
     Active Substance: METHAMPHETAMINE
     Indication: INTENTIONAL PRODUCT MISUSE
     Dosage: UNK
     Route: 065

REACTIONS (1)
  - Death [Fatal]
